FAERS Safety Report 9327799 (Version 1)
Quarter: 2013Q2

REPORT INFORMATION
  Report Type: Spontaneous
  Country: US (occurrence: US)
  Receive Date: 20130604
  Receipt Date: 20130604
  Transmission Date: 20140414
  Serious: No
  Sender: FDA-Public Use
  Company Number: US-ROXANE LABORATORIES, INC.-2013-RO-00911RO

PATIENT
  Age: 31 Year
  Sex: Male

DRUGS (1)
  1. MORPHINE [Suspect]
     Indication: PAIN
     Dosage: 45 MG

REACTIONS (1)
  - Drug withdrawal syndrome [Unknown]
